FAERS Safety Report 4284758-0 (Version None)
Quarter: 2004Q1

REPORT INFORMATION
  Report Type: 
  Country: None (occurrence: None)
  Receive Date: 20040202
  Receipt Date: 20040119
  Transmission Date: 20041129
  Serious: Yes (Life-Threatening, Hospitalization, Disabling)
  Sender: FDA-Public Use
  Company Number: 2003125457

PATIENT
  Age: 74 Year
  Sex: Male
  Weight: 80 kg

DRUGS (6)
  1. LUSTRAL (SERTRALINE) [Suspect]
     Indication: ILL-DEFINED DISORDER
     Dosage: 100 MG (DAILY), ORAL
     Route: 048
  2. LOSARTAN (LOSARTAN) [Concomitant]
  3. AMLODIPINE [Concomitant]
  4. PRAVASTATIN [Concomitant]
  5. BENDROFLUMETHIAZIDE (BENDROFLUMETHAZIDE) [Concomitant]
  6. OMEPRAZOLE [Concomitant]

REACTIONS (9)
  - CONFUSIONAL STATE [None]
  - DELUSION [None]
  - DYSARTHRIA [None]
  - DYSPHASIA [None]
  - GAIT DISTURBANCE [None]
  - HYPOMANIA [None]
  - HYPONATRAEMIA [None]
  - MEDICATION ERROR [None]
  - TREMOR [None]
